FAERS Safety Report 13926884 (Version 1)
Quarter: 2017Q3

REPORT INFORMATION
  Report Type: Spontaneous
  Country: US (occurrence: US)
  Receive Date: 20170831
  Receipt Date: 20170831
  Transmission Date: 20171127
  Serious: Yes (Hospitalization, Disabling, Other)
  Sender: FDA-Public Use
  Company Number: US-009507513-1205USA00957

PATIENT
  Sex: Female
  Weight: 64.85 kg

DRUGS (3)
  1. BONIVA [Suspect]
     Active Substance: IBANDRONATE SODIUM
     Indication: OSTEOPOROSIS
  2. BONIVA [Suspect]
     Active Substance: IBANDRONATE SODIUM
     Indication: OSTEOPENIA
     Dosage: 150 MG, QM
     Route: 048
     Dates: start: 20070919, end: 201003
  3. FOSAMAX [Suspect]
     Active Substance: ALENDRONATE SODIUM
     Indication: OSTEOPENIA
     Dosage: 70 MG, UNKNOWN
     Route: 048
     Dates: start: 200006, end: 2007

REACTIONS (29)
  - Femur fracture [Recovering/Resolving]
  - Mobility decreased [Unknown]
  - Pruritus [Unknown]
  - Hand fracture [Unknown]
  - Device breakage [Unknown]
  - Rotator cuff repair [Unknown]
  - Drug hypersensitivity [Unknown]
  - Back pain [Unknown]
  - Loss of personal independence in daily activities [Unknown]
  - Haemoglobin decreased [Unknown]
  - Drug hypersensitivity [Unknown]
  - Sleep disorder [Unknown]
  - Femoroacetabular impingement [Unknown]
  - Packed red blood cell transfusion [Unknown]
  - Osteoporosis [Not Recovered/Not Resolved]
  - Stress fracture [Not Recovered/Not Resolved]
  - Depression [Unknown]
  - Neuralgia [Unknown]
  - Bursitis [Unknown]
  - Tooth extraction [Unknown]
  - Hypoaesthesia [Unknown]
  - Hypernatraemia [Unknown]
  - Urinary tract infection [Unknown]
  - Wrist fracture [Unknown]
  - Skin abrasion [Unknown]
  - Low turnover osteopathy [Not Recovered/Not Resolved]
  - Impaired healing [Unknown]
  - Rotator cuff repair [Unknown]
  - Skin cancer [Unknown]

NARRATIVE: CASE EVENT DATE: 20020722
